FAERS Safety Report 7756760-5 (Version None)
Quarter: 2011Q3

REPORT INFORMATION
  Report Type: 
  Country: None (occurrence: None)
  Receive Date: 20110916
  Receipt Date: 20110906
  Transmission Date: 20111222
  Serious: Yes (Life-Threatening, Hospitalization, Other)
  Sender: FDA-Public Use
  Company Number: US-BAYER-200937502NA

PATIENT
  Age: 28 Year
  Sex: Female
  Weight: 86.364 kg

DRUGS (8)
  1. YAZ [Suspect]
     Indication: CONTRACEPTION
     Dosage: 1 DF, QD
     Route: 048
     Dates: start: 20080625, end: 20090114
  2. YAZ [Suspect]
     Indication: ACNE
  3. HCL [Concomitant]
     Indication: MULTIPLE ALLERGIES
     Dates: start: 20080829, end: 20081124
  4. YAZ [Suspect]
  5. HEPARIN [Concomitant]
     Dates: start: 20100116, end: 20100119
  6. YAZ [Suspect]
     Indication: PREMENSTRUAL SYNDROME
  7. PHENTERMINE [Concomitant]
     Dosage: 37.5 MG (1/2 TABLET)
     Dates: start: 20090102
  8. COUMADIN [Concomitant]
     Dates: start: 20090116, end: 20090701

REACTIONS (8)
  - CHEST DISCOMFORT [None]
  - DYSPNOEA [None]
  - FEELING ABNORMAL [None]
  - CHEST PAIN [None]
  - PULMONARY EMBOLISM [None]
  - PULMONARY INFARCTION [None]
  - MITRAL VALVE PROLAPSE [None]
  - PALPITATIONS [None]
